FAERS Safety Report 17505188 (Version 2)
Quarter: 2020Q1

REPORT INFORMATION
  Report Type: Spontaneous
  Country: US (occurrence: US)
  Receive Date: 20200306
  Receipt Date: 20200323
  Transmission Date: 20200409
  Serious: No
  Sender: FDA-Public Use
  Company Number: US-DSJP-DSU-2020-107163

PATIENT

DRUGS (3)
  1. ONDANSETRON [Suspect]
     Active Substance: ONDANSETRON
     Indication: NAUSEA
     Dosage: UNK
     Route: 065
  2. ENHERTU [Suspect]
     Active Substance: FAM-TRASTUZUMAB DERUXTECAN-NXKI
     Dosage: UNK UNK, ONCE EVERY 3 WK
     Route: 042
     Dates: start: 20200212, end: 20200212
  3. ENHERTU [Suspect]
     Active Substance: FAM-TRASTUZUMAB DERUXTECAN-NXKI
     Indication: BREAST CANCER METASTATIC
     Dosage: UNK UNK, ONCE EVERY 3 WK
     Route: 042
     Dates: start: 20200123, end: 20200123

REACTIONS (15)
  - Weight decreased [Unknown]
  - Nausea [Unknown]
  - Alopecia [Unknown]
  - Heart rate irregular [Unknown]
  - Discomfort [Unknown]
  - Decreased appetite [Unknown]
  - Blood potassium decreased [Unknown]
  - Neuropathy peripheral [Unknown]
  - Constipation [Unknown]
  - Rash [Unknown]
  - Muscle strain [Unknown]
  - Vomiting [Unknown]
  - Fall [Unknown]
  - Emotional distress [Unknown]
  - Dyspepsia [Unknown]

NARRATIVE: CASE EVENT DATE: 2020
